FAERS Safety Report 5991331-2 (Version None)
Quarter: 2008Q4

REPORT INFORMATION
  Report Type: 
  Country: None (occurrence: None)
  Receive Date: 20081202
  Receipt Date: 20080204
  Transmission Date: 20090506
  Serious: Yes (Other)
  Sender: FDA-Public Use
  Company Number: WAES 0802USA00749

PATIENT
  Age: 54 Year
  Sex: Female
  Weight: 65.318 kg

DRUGS (4)
  1. FOSAMAX [Suspect]
     Indication: OSTEOPENIA
     Dosage: DAILY/PO ; 70 MG/WKY/PO ; 70 MG/PO
     Route: 048
     Dates: start: 19970101, end: 20010329
  2. FOSAMAX [Suspect]
     Indication: OSTEOPENIA
     Dosage: DAILY/PO ; 70 MG/WKY/PO ; 70 MG/PO
     Route: 048
     Dates: start: 20010329, end: 20070101
  3. FOSAMAX [Suspect]
     Indication: OSTEOPENIA
     Dosage: DAILY/PO ; 70 MG/WKY/PO ; 70 MG/PO
     Route: 048
     Dates: start: 20070430, end: 20070801
  4. FOSAMAX PLUS D [Concomitant]

REACTIONS (29)
  - ADVERSE EVENT [None]
  - BLOOD IMMUNOGLOBULIN A DECREASED [None]
  - BLOOD IMMUNOGLOBULIN G DECREASED [None]
  - BLOOD PRESSURE INCREASED [None]
  - CHRONIC SINUSITIS [None]
  - COUGH [None]
  - DYSMENORRHOEA [None]
  - EYE PAIN [None]
  - FATIGUE [None]
  - GASTROOESOPHAGEAL REFLUX DISEASE [None]
  - HEADACHE [None]
  - HOT FLUSH [None]
  - HYPOTHYROIDISM [None]
  - IMMUNE SYSTEM DISORDER [None]
  - INTERVERTEBRAL DISC PROTRUSION [None]
  - IRRITABLE BOWEL SYNDROME [None]
  - MENORRHAGIA [None]
  - NASAL CONGESTION [None]
  - NAUSEA [None]
  - OEDEMA PERIPHERAL [None]
  - OSTEONECROSIS [None]
  - OSTEOPOROSIS [None]
  - PAIN [None]
  - POSTNASAL DRIP [None]
  - RASH [None]
  - SNORING [None]
  - TACHYCARDIA [None]
  - TEMPOROMANDIBULAR JOINT SYNDROME [None]
  - UTERINE LEIOMYOMA [None]
